FAERS Safety Report 8848082 (Version 1)
Quarter: 2012Q4

REPORT INFORMATION
  Report Type: 
  Country: US (occurrence: US)
  Receive Date: 20121018
  Receipt Date: 20121018
  Transmission Date: 20130627
  Serious: Yes (Hospitalization, Other)
  Sender: FDA-Public Use
  Company Number: US-SANOFI-AVENTIS-2012SA075477

PATIENT
  Sex: Female

DRUGS (2)
  1. SOLOSTAR [Suspect]
     Indication: TYPE II DIABETES MELLITUS
  2. LANTUS SOLOSTAR [Suspect]
     Indication: TYPE II DIABETES MELLITUS
     Dosage: Dose:25 unit(s)
     Route: 058

REACTIONS (9)
  - Syncope [Unknown]
  - Tremor [Unknown]
  - Hyperhidrosis [Unknown]
  - Tooth disorder [Unknown]
  - Abdominal discomfort [Unknown]
  - Face injury [Unknown]
  - Cataract [Unknown]
  - Visual impairment [Unknown]
  - Hyperglycaemia [Unknown]
